FAERS Safety Report 9613336 (Version 2)
Quarter: 2014Q1

REPORT INFORMATION
  Report Type: Spontaneous
  Country: US (occurrence: US)
  Receive Date: 20131010
  Receipt Date: 20140123
  Transmission Date: 20141002
  Serious: Yes (Hospitalization)
  Sender: FDA-Public Use
  Company Number: US-B.I. PHARMACEUTICALS,INC./RIDGEFIELD-2013-BI-31799BP

PATIENT
  Age: 81 Year
  Sex: Female
  Weight: 102.06 kg

DRUGS (16)
  1. PRADAXA [Suspect]
     Indication: ATRIAL FIBRILLATION
     Dosage: 150 MG
     Route: 048
     Dates: start: 20120627, end: 20130227
  2. TYLENOL [Concomitant]
     Route: 048
  3. ALLOPURINOL [Concomitant]
     Dosage: 200 MG
     Route: 048
  4. NORVASC [Concomitant]
     Dosage: 10 MG
     Route: 048
  5. ATENOLOL [Concomitant]
     Dosage: 200 MG
     Route: 048
  6. BENAZEPRIL [Concomitant]
     Dosage: 20 MG
     Route: 048
  7. CLOBETASOL [Concomitant]
  8. CLONIDINE [Concomitant]
     Dosage: 0.6 MG
     Route: 048
  9. VITAMIN B12 [Concomitant]
     Dosage: 1000 MCG
     Route: 048
  10. LASIX [Concomitant]
     Dosage: 80 MG
     Route: 048
  11. SYNTHROID [Concomitant]
     Dosage: 75 MCG
     Route: 048
  12. KLOR-CON [Concomitant]
     Dosage: 10 MEQ
     Route: 048
  13. NORCO [Concomitant]
     Route: 048
  14. VITAMIN B6 [Concomitant]
     Dosage: 50 MG
     Route: 048
  15. COLCHICINE [Concomitant]
     Route: 048
  16. FLECTOR PATCH [Concomitant]
     Route: 061

REACTIONS (1)
  - Subarachnoid haemorrhage [Unknown]
